FAERS Safety Report 8866231 (Version 1)
Quarter: 2012Q4

REPORT INFORMATION
  Report Type: 
  Country: US (occurrence: US)
  Receive Date: 20121025
  Receipt Date: 20121025
  Transmission Date: 20130627
  Serious: Yes (Other)
  Sender: FDA-Public Use
  Company Number: PHEH2012US020859

PATIENT
  Sex: Female

DRUGS (1)
  1. EXELON PATCH [Suspect]

REACTIONS (3)
  - Aphasia [Unknown]
  - Dyspnoea [Unknown]
  - Accidental exposure to product [Unknown]
